FAERS Safety Report 23493001 (Version 1)
Quarter: 2024Q1

REPORT INFORMATION
  Report Type: Report from Study
  Country: US (occurrence: US)
  Receive Date: 20240207
  Receipt Date: 20240207
  Transmission Date: 20240410
  Serious: Yes (Disabling)
  Sender: FDA-Public Use
  Company Number: US-ABBVIE-5619789

PATIENT
  Sex: Female

DRUGS (1)
  1. HUMIRA [Suspect]
     Active Substance: ADALIMUMAB
     Indication: Rheumatoid arthritis
     Route: 058
     Dates: start: 202302

REACTIONS (7)
  - Disability [Unknown]
  - Malaise [Unknown]
  - Fatigue [Unknown]
  - Arthropathy [Unknown]
  - Memory impairment [Unknown]
  - Muscular weakness [Unknown]
  - Arthralgia [Unknown]
